FAERS Safety Report 10451397 (Version 1)
Quarter: 2014Q3

REPORT INFORMATION
  Report Type: Spontaneous
  Country: DE (occurrence: DE)
  Receive Date: 20140912
  Receipt Date: 20140912
  Transmission Date: 20150326
  Serious: Yes (Other)
  Sender: FDA-Public Use
  Company Number: DE-ABBVIE-14P-062-1283158-00

PATIENT
  Sex: Female

DRUGS (2)
  1. KREON [Suspect]
     Active Substance: PANCRELIPASE
     Dosage: KREON 40000
  2. KREON [Suspect]
     Active Substance: PANCRELIPASE
     Indication: PANCREATIC INSUFFICIENCY
     Dosage: KREON 25000

REACTIONS (2)
  - Wrong technique in drug usage process [Unknown]
  - Mouth ulceration [Unknown]
